FAERS Safety Report 6788980-0 (Version None)
Quarter: 2010Q2

REPORT INFORMATION
  Report Type: 
  Country: None (occurrence: None)
  Receive Date: 20100623
  Receipt Date: 20080617
  Transmission Date: 20101027
  Serious: No
  Sender: FDA-Public Use
  Company Number: US-PFIZER INC-2008051239

PATIENT
  Sex: Female

DRUGS (2)
  1. PROVERA [Suspect]
     Indication: OVARIAN CYST
  2. AUGMENTIN '125' [Interacting]

REACTIONS (2)
  - DRUG INTERACTION [None]
  - POLYMENORRHOEA [None]
